FAERS Safety Report 23823338 (Version 2)
Quarter: 2024Q3

REPORT INFORMATION
  Report Type: Spontaneous
  Country: DE (occurrence: DE)
  Receive Date: 20240507
  Receipt Date: 20240910
  Transmission Date: 20241016
  Serious: Yes (Hospitalization, Other)
  Sender: ROCHE
  Company Number: DE-ROCHE-3553248

PATIENT
  Age: 75 Year
  Sex: Female

DRUGS (4)
  1. OCREVUS [Suspect]
     Active Substance: OCRELIZUMAB
     Indication: Multiple sclerosis
     Dosage: LAST OCREVUS INFUSION ON //AUG/2022
     Route: 065
     Dates: start: 202107, end: 202208
  2. XARELTO [Concomitant]
     Active Substance: RIVAROXABAN
     Indication: Atrial fibrillation
     Route: 048
  3. CHOLECALCIFEROL [Concomitant]
     Active Substance: CHOLECALCIFEROL
     Route: 048
  4. BIOTIN [Concomitant]
     Active Substance: BIOTIN

REACTIONS (4)
  - Fall [Unknown]
  - Immobile [Recovered/Resolved with Sequelae]
  - Hepatic cirrhosis [Recovered/Resolved with Sequelae]
  - Ascites [Recovered/Resolved with Sequelae]

NARRATIVE: CASE EVENT DATE: 20230128
